FAERS Safety Report 6585788-6 (Version None)
Quarter: 2010Q1

REPORT INFORMATION
  Report Type: 
  Country: None (occurrence: None)
  Receive Date: 20100217
  Receipt Date: 20100209
  Transmission Date: 20100710
  Serious: Yes (Hospitalization)
  Sender: FDA-Public Use
  Company Number: ZA-WYE-H12749609

PATIENT
  Sex: Male
  Weight: 85.4 kg

DRUGS (7)
  1. TEMSIROLIMUS [Suspect]
     Indication: RENAL CANCER METASTATIC
     Route: 042
     Dates: start: 20091202, end: 20091218
  2. TEMSIROLIMUS [Suspect]
     Dosage: NOT PROVIDED
     Dates: start: 20100121
  3. BEVACIZUMAB [Suspect]
     Indication: METASTATIC RENAL CELL CARCINOMA
     Route: 042
     Dates: start: 20091202, end: 20091218
  4. BEVACIZUMAB [Suspect]
     Dates: start: 20100128
  5. SEROQUEL [Concomitant]
     Indication: BIPOLAR DISORDER
     Dates: start: 20080101
  6. GLUCOPHAGE [Concomitant]
     Indication: DIABETES MELLITUS
     Dates: start: 20080801
  7. CYMBALTA [Concomitant]
     Indication: BIPOLAR DISORDER
     Dates: start: 20080101

REACTIONS (1)
  - CHOLECYSTITIS ACUTE [None]
